FAERS Safety Report 5627496-1 (Version None)
Quarter: 2008Q1

REPORT INFORMATION
  Report Type: 
  Country: None (occurrence: None)
  Receive Date: 20080215
  Receipt Date: 20071217
  Transmission Date: 20080703
  Serious: Yes (Hospitalization, Disabling)
  Sender: FDA-Public Use
  Company Number: A0689575A

PATIENT
  Sex: Male
  Weight: 90.9 kg

DRUGS (2)
  1. COREG CR [Suspect]
     Indication: DRUG USE FOR UNKNOWN INDICATION
     Dosage: 80MG TWICE PER DAY
     Route: 048
     Dates: end: 20070828
  2. NO CONCURRENT MEDICATION [Concomitant]

REACTIONS (1)
  - MALAISE [None]
